FAERS Safety Report 20655429 (Version 3)
Quarter: 2022Q4

REPORT INFORMATION
  Report Type: Report from Study
  Country: CA (occurrence: CA)
  Receive Date: 20220330
  Receipt Date: 20221207
  Transmission Date: 20230112
  Serious: Yes (Other)
  Sender: FDA-Public Use
  Company Number: CA-OTSUKA-2021_024323

PATIENT
  Age: 96 Year
  Sex: Male

DRUGS (11)
  1. CEDAZURIDINE\DECITABINE [Suspect]
     Active Substance: CEDAZURIDINE\DECITABINE
     Indication: Myelodysplastic syndrome
     Dosage: 1 DF, QD FOR 5 DAYS IN 28 DAY CYCLE
     Route: 065
     Dates: start: 20210210
  2. CEDAZURIDINE\DECITABINE [Suspect]
     Active Substance: CEDAZURIDINE\DECITABINE
     Dosage: 1 DF, QD FOR 4 DAYS IN 28 DAY CYCLE
     Route: 065
  3. CEDAZURIDINE\DECITABINE [Suspect]
     Active Substance: CEDAZURIDINE\DECITABINE
     Dosage: (FOUR DOSES WITHIN THE 24-DAY CYCLE)
     Route: 065
  4. CEDAZURIDINE\DECITABINE [Suspect]
     Active Substance: CEDAZURIDINE\DECITABINE
     Dosage: (THREE DOSES WITHIN THE 24-DAY CYCLE)
     Route: 065
  5. DONEPEZIL [Concomitant]
     Active Substance: DONEPEZIL
     Indication: Product used for unknown indication
     Route: 065
  6. PERINDOPRIL [Concomitant]
     Active Substance: PERINDOPRIL
     Indication: Product used for unknown indication
     Route: 065
  7. BISOPROLOL [Concomitant]
     Active Substance: BISOPROLOL
     Indication: Product used for unknown indication
     Route: 065
  8. FUROSEMIDE [Concomitant]
     Active Substance: FUROSEMIDE
     Indication: Product used for unknown indication
     Route: 065
  9. DULOXETINE [Concomitant]
     Active Substance: DULOXETINE
     Indication: Product used for unknown indication
     Route: 065
  10. PANTOPRAZOLE [Concomitant]
     Active Substance: PANTOPRAZOLE
     Indication: Product used for unknown indication
     Route: 065
  11. PROCHLORPERAZINE [Concomitant]
     Active Substance: PROCHLORPERAZINE
     Indication: Product used for unknown indication
     Route: 065

REACTIONS (7)
  - Cholelithiasis [Recovered/Resolved]
  - Cytopenia [Unknown]
  - COVID-19 [Unknown]
  - Full blood count abnormal [Unknown]
  - Biopsy bone marrow [Unknown]
  - Product use issue [Unknown]
  - Therapy interrupted [Unknown]

NARRATIVE: CASE EVENT DATE: 20220318
